FAERS Safety Report 25727160 (Version 1)
Quarter: 2025Q3

REPORT INFORMATION
  Report Type: Spontaneous
  Country: US (occurrence: None)
  Receive Date: 20250825
  Receipt Date: 20250825
  Transmission Date: 20251021
  Serious: Yes (Hospitalization)
  Sender: FDA-CTU
  Company Number: None

PATIENT
  Age: 73 Year
  Sex: Female

DRUGS (13)
  1. POMALYST [Suspect]
     Active Substance: POMALIDOMIDE
     Indication: Plasma cell myeloma
     Dosage: 2 MG DAYS 1-14 OF  A 28-DAY CYCLE ORAL ?
     Route: 048
     Dates: start: 20231116
  2. BENADRYL [Concomitant]
     Active Substance: DIPHENHYDRAMINE HYDROCHLORIDE
  3. ROSUVASTATIN [Concomitant]
     Active Substance: ROSUVASTATIN
  4. VITAMIN D [Concomitant]
     Active Substance: VITAMIN D NOS
  5. FLAVOXATE [Concomitant]
     Active Substance: FLAVOXATE
  6. ZINC [Concomitant]
     Active Substance: ZINC
  7. TRULICITY [Concomitant]
     Active Substance: DULAGLUTIDE
  8. FENTANYL [Concomitant]
     Active Substance: FENTANYL
  9. PAMIDRONATE [Concomitant]
     Active Substance: PAMIDRONATE DISODIUM
  10. ARANESP [Concomitant]
     Active Substance: DARBEPOETIN ALFA
  11. CALCIUM CITRATE [Concomitant]
     Active Substance: CALCIUM CITRATE
  12. CYANOCOBALAMIN [Concomitant]
     Active Substance: CYANOCOBALAMIN
  13. MAGNESIUM [Concomitant]
     Active Substance: MAGNESIUM

REACTIONS (2)
  - Urinary tract infection [None]
  - Sepsis [None]

NARRATIVE: CASE EVENT DATE: 20250801
